FAERS Safety Report 11111902 (Version 1)
Quarter: 2015Q2

REPORT INFORMATION
  Report Type: Report from Study
  Country: GB (occurrence: GB)
  Receive Date: 20150514
  Receipt Date: 20150514
  Transmission Date: 20150821
  Serious: Yes (Life-Threatening)
  Sender: FDA-Public Use
  Company Number: GB-ROCHE-1047173

PATIENT
  Age: 47 Year
  Sex: Female

DRUGS (4)
  1. CAPECITABINE. [Suspect]
     Active Substance: CAPECITABINE
     Indication: GASTRIC CANCER
     Dosage: MOST RECENT DOS EPRIOR TO SAE:01 DEC 2011
     Route: 048
     Dates: start: 20110428
  2. BEVACIZUMAB [Suspect]
     Active Substance: BEVACIZUMAB
     Indication: GASTRIC CANCER
     Dosage: MOST RECENT DOS EPRIOR TO SAE:30 NOV 2011
     Route: 042
     Dates: start: 20110428
  3. CISPLATIN. [Suspect]
     Active Substance: CISPLATIN
     Indication: GASTRIC CANCER
     Dosage: MOST RECENT DOS EPRIOR TO SAE:10 NOV 2011
     Route: 042
     Dates: start: 20110428
  4. EPIRUBICIN [Suspect]
     Active Substance: EPIRUBICIN
     Indication: GASTRIC CANCER
     Dosage: MOST RECENT DOS EPRIOR TO SAE: 10 NOV 2011
     Route: 042
     Dates: start: 20110428

REACTIONS (2)
  - Deep vein thrombosis [Not Recovered/Not Resolved]
  - Pulmonary embolism [Not Recovered/Not Resolved]

NARRATIVE: CASE EVENT DATE: 20111216
